FAERS Safety Report 4845300-6 (Version None)
Quarter: 2005Q4

REPORT INFORMATION
  Report Type: 
  Country: None (occurrence: None)
  Receive Date: 20051205
  Receipt Date: 20051124
  Transmission Date: 20060501
  Serious: Yes (Other)
  Sender: FDA-Public Use
  Company Number: BR-GLAXOSMITHKLINE-A0584326A

PATIENT
  Age: 6 Month
  Sex: Male
  Weight: 5 kg

DRUGS (2)
  1. DIGOXINA [Suspect]
     Indication: HYPERTENSION
     Dosage: .5ML TWICE PER DAY
     Route: 048
     Dates: start: 20051110
  2. FUROSEMIDE [Concomitant]
     Dosage: 20MGML PER DAY
     Dates: start: 20051110

REACTIONS (4)
  - ANAEMIA [None]
  - ANOREXIA [None]
  - DRUG INEFFECTIVE [None]
  - WEIGHT DECREASED [None]
